FAERS Safety Report 5051505-4 (Version None)
Quarter: 2006Q3

REPORT INFORMATION
  Report Type: 
  Country: None (occurrence: None)
  Receive Date: 20060711
  Receipt Date: 20060705
  Transmission Date: 20061208
  Serious: Yes (Life-Threatening, Hospitalization)
  Sender: FDA-Public Use
  Company Number: 2006PV016918

PATIENT
  Age: 59 Year
  Sex: Male
  Weight: 140.0254 kg

DRUGS (2)
  1. BYETTA [Suspect]
     Indication: DIABETES MELLITUS NON-INSULIN-DEPENDENT
     Dosage: SEE IMAGE
     Route: 058
     Dates: start: 20060524, end: 20060622
  2. BYETTA [Suspect]
     Indication: DIABETES MELLITUS NON-INSULIN-DEPENDENT
     Dosage: SEE IMAGE
     Route: 058
     Dates: start: 20060623, end: 20060702

REACTIONS (11)
  - ABDOMINAL PAIN UPPER [None]
  - ANAPHYLACTIC REACTION [None]
  - DISCOMFORT [None]
  - DYSPNOEA [None]
  - FLUSHING [None]
  - HYPERHIDROSIS [None]
  - MALAISE [None]
  - NAUSEA [None]
  - OXYGEN SATURATION DECREASED [None]
  - RASH [None]
  - URTICARIA [None]
